FAERS Safety Report 5119628-9 (Version None)
Quarter: 2006Q4

REPORT INFORMATION
  Report Type: 
  Country: None (occurrence: None)
  Receive Date: 20061003
  Receipt Date: 20060928
  Transmission Date: 20070319
  Serious: Yes (Hospitalization)
  Sender: FDA-Public Use
  Company Number: FR-GLAXOSMITHKLINE-B0440149A

PATIENT
  Age: 82 Year
  Sex: Female
  Weight: 82 kg

DRUGS (10)
  1. AUGMENTIN [Suspect]
     Route: 048
     Dates: start: 20060727, end: 20060829
  2. ROVAMYCINE [Suspect]
     Route: 048
     Dates: start: 20060805, end: 20060829
  3. ROCEPHIN [Suspect]
     Dosage: 1G PER DAY
     Route: 042
     Dates: start: 20060804, end: 20060805
  4. VENTOLIN [Concomitant]
     Route: 055
     Dates: start: 20060804, end: 20060805
  5. TILDIEM [Concomitant]
     Route: 048
  6. LASIX [Concomitant]
     Dosage: 40MG PER DAY
     Route: 048
  7. PRIMPERAN TAB [Concomitant]
     Route: 065
  8. INIPOMP [Concomitant]
     Route: 065
  9. NOVONORM [Concomitant]
     Route: 065
  10. ZELITREX [Concomitant]
     Indication: HERPES ZOSTER
     Route: 065
     Dates: start: 20060824

REACTIONS (5)
  - BLOOD CREATININE INCREASED [None]
  - HAEMATURIA [None]
  - PROTEINURIA [None]
  - RENAL FAILURE [None]
  - VASCULAR PURPURA [None]
